FAERS Safety Report 8960055 (Version 1)
Quarter: 2012Q4

REPORT INFORMATION
  Report Type: 
  Country: US (occurrence: US)
  Receive Date: 20121211
  Receipt Date: 20121211
  Transmission Date: 20130627
  Serious: Yes (Hospitalization)
  Sender: FDA-Public Use
  Company Number: US-GLAXOSMITHKLINE-A0775476A

PATIENT
  Age: 60 Year
  Sex: Female
  Weight: 71.8 kg

DRUGS (1)
  1. AVANDIA [Suspect]
     Indication: DIABETES MELLITUS
     Dosage: 4MG Per day
     Route: 048
     Dates: start: 200604, end: 200612

REACTIONS (2)
  - Cerebrovascular accident [Not Recovered/Not Resolved]
  - Weight increased [Unknown]
